FAERS Safety Report 14483780 (Version 1)
Quarter: 2018Q1

REPORT INFORMATION
  Report Type: Spontaneous
  Country: US (occurrence: US)
  Receive Date: 20180205
  Receipt Date: 20180205
  Transmission Date: 20180509
  Serious: No
  Sender: FDA-Public Use
  Company Number: US-SUN PHARMACEUTICAL INDUSTRIES LTD-2017US-155031

PATIENT

DRUGS (2)
  1. BROMSITE [Suspect]
     Active Substance: BROMFENAC SODIUM
     Indication: POSTOPERATIVE CARE
     Dosage: UNK, BID
     Route: 065
  2. TRI-MOXI IMPRIMIS [Suspect]
     Active Substance: MOXIFLOXACIN\TRIAMCINOLONE
     Indication: SURGERY
     Route: 065

REACTIONS (1)
  - Ulcerative keratitis [Unknown]
